FAERS Safety Report 9011769 (Version 1)
Quarter: 2012Q4

REPORT INFORMATION
  Report Type: Spontaneous
  Country: US (occurrence: None)
  Receive Date: 20121228
  Receipt Date: 20121228
  Transmission Date: 20130627
  Serious: Yes (Hospitalization)
  Sender: FDA-Public Use
  Company Number: 20120767

PATIENT
  Age: 15 Year
  Sex: Female

DRUGS (2)
  1. NEOSTIGMINE METHYLSULFATE INJECTION, USP (0033-10) 1.0 MG/ML [Suspect]
     Indication: OGILVIE^S SYNDROME
  2. NEOSTIGMINE METHYLSULFATE INJECTION, USP (0033-10) 1.0 MG/ML [Suspect]
     Indication: OGILVIE^S SYNDROME

REACTIONS (8)
  - Bronchospasm [None]
  - Throat tightness [None]
  - Dyspnoea [None]
  - Erythema [None]
  - Therapeutic response decreased [None]
  - Infusion related reaction [None]
  - Osteosarcoma metastatic [None]
  - Malignant neoplasm progression [None]
